FAERS Safety Report 20002988 (Version 1)
Quarter: 2021Q4

REPORT INFORMATION
  Report Type: Spontaneous
  Country: CH (occurrence: CH)
  Receive Date: 20211027
  Receipt Date: 20211027
  Transmission Date: 20220303
  Serious: Yes (Hospitalization)
  Sender: FDA-Public Use
  Company Number: CH-PFIZER INC-202101381560

PATIENT
  Age: 63 Year
  Sex: Male

DRUGS (7)
  1. MEROPENEM [Suspect]
     Active Substance: MEROPENEM
     Indication: Superinfection bacterial
     Dosage: UNK
  2. VANCOMYCIN [Concomitant]
     Active Substance: VANCOMYCIN
     Indication: Superinfection bacterial
     Dosage: UNK
  3. REMDESIVIR [Concomitant]
     Active Substance: REMDESIVIR
     Dosage: UNK
  4. DEXAMETHASONE [Concomitant]
     Active Substance: DEXAMETHASONE
     Dosage: UNK
  5. AMOXICILLIN\CLAVULANIC ACID [Concomitant]
     Active Substance: AMOXICILLIN\CLAVULANIC ACID
     Indication: Superinfection bacterial
     Dosage: UNK
  6. CLARITHROMYCIN [Concomitant]
     Active Substance: CLARITHROMYCIN
     Indication: Superinfection bacterial
     Dosage: UNK
  7. PIPERACILLIN SODIUM\TAZOBACTAM SODIUM [Concomitant]
     Active Substance: PIPERACILLIN SODIUM\TAZOBACTAM SODIUM
     Indication: Superinfection bacterial
     Dosage: UNK

REACTIONS (1)
  - Liver disorder [Recovering/Resolving]
